FAERS Safety Report 4911993-8 (Version None)
Quarter: 2006Q1

REPORT INFORMATION
  Report Type: 
  Country: None (occurrence: None)
  Receive Date: 20060213
  Receipt Date: 20060130
  Transmission Date: 20060701
  Serious: Yes (Other)
  Sender: FDA-Public Use
  Company Number: 2006BH002162

PATIENT
  Sex: Female

DRUGS (2)
  1. EXTRANEAL [Suspect]
     Indication: PERITONEAL DIALYSIS
     Dosage: AS NEEDED; IP
     Route: 033
  2. EXTRANEAL [Suspect]

REACTIONS (3)
  - OEDEMA GENITAL [None]
  - PROCEDURAL COMPLICATION [None]
  - SKIN REACTION [None]
